FAERS Safety Report 10525110 (Version 5)
Quarter: 2015Q3

REPORT INFORMATION
  Report Type: Report from Study
  Country: US (occurrence: US)
  Receive Date: 20141017
  Receipt Date: 20150716
  Transmission Date: 20151125
  Serious: Yes (Hospitalization, Other)
  Sender: FDA-Public Use
  Company Number: US-BAYER-2014-078999

PATIENT
  Age: 48 Year
  Sex: Male
  Weight: 163.3 kg

DRUGS (12)
  1. ADEMPAS [Suspect]
     Active Substance: RIOCIGUAT
     Indication: PULMONARY ARTERIAL HYPERTENSION
     Dosage: 2 MG, TID
     Route: 048
  2. ADEMPAS [Suspect]
     Active Substance: RIOCIGUAT
     Indication: PULMONARY ARTERIAL HYPERTENSION
     Dosage: 1 MG, TID
     Route: 048
  3. COUMADIN [Concomitant]
     Active Substance: WARFARIN SODIUM
  4. REMODULIN [Concomitant]
     Active Substance: TREPROSTINIL
  5. TRACLEER [Concomitant]
     Active Substance: BOSENTAN
  6. WARFARIN [Concomitant]
     Active Substance: WARFARIN
  7. ADEMPAS [Suspect]
     Active Substance: RIOCIGUAT
     Indication: PULMONARY ARTERIAL HYPERTENSION
     Dosage: 2.5 MG, TID
     Route: 048
  8. ADEMPAS [Suspect]
     Active Substance: RIOCIGUAT
     Indication: PULMONARY EMBOLISM
     Dosage: 0.5 MG, TID
     Route: 048
     Dates: start: 20140516
  9. ADEMPAS [Suspect]
     Active Substance: RIOCIGUAT
     Indication: PULMONARY ARTERIAL HYPERTENSION
     Dosage: 1.5 MG, TID
     Route: 048
     Dates: start: 20140516
  10. ADEMPAS [Suspect]
     Active Substance: RIOCIGUAT
     Indication: PULMONARY ARTERIAL HYPERTENSION
     Dosage: 2.5 MG, TID
     Route: 048
     Dates: start: 20140515
  11. ADEMPAS [Suspect]
     Active Substance: RIOCIGUAT
     Indication: PULMONARY ARTERIAL HYPERTENSION
     Dosage: 1.5 MG, TID
     Route: 048
     Dates: start: 20140103
  12. TYVASO [Suspect]
     Active Substance: TREPROSTINIL
     Indication: PULMONARY HYPERTENSION
     Dosage: 18-72 MCG QID,
     Route: 055
     Dates: start: 20110901

REACTIONS (23)
  - Pain in extremity [None]
  - Gastrointestinal pain [None]
  - Pain in extremity [Recovered/Resolved]
  - Rash [None]
  - Diarrhoea [None]
  - Oedema [None]
  - Catheterisation cardiac [None]
  - Bone pain [None]
  - Dizziness [Unknown]
  - Malaise [None]
  - Drug ineffective [None]
  - Musculoskeletal disorder [None]
  - Arthralgia [None]
  - Ventricular tachyarrhythmia [None]
  - Fatigue [Unknown]
  - Pollakiuria [None]
  - Back pain [None]
  - Application site erythema [None]
  - Headache [Recovered/Resolved]
  - Pulmonary arterial hypertension [None]
  - Cough [Recovering/Resolving]
  - Headache [Recovered/Resolved with Sequelae]
  - Dyspnoea exertional [None]

NARRATIVE: CASE EVENT DATE: 20140710
